FAERS Safety Report 9555929 (Version 2)
Quarter: 2013Q4

REPORT INFORMATION
  Report Type: Report from Study
  Country: US (occurrence: US)
  Receive Date: 20130926
  Receipt Date: 20131002
  Transmission Date: 20140711
  Serious: Yes (Death)
  Sender: FDA-Public Use
  Company Number: US-ASTELLAS-2013US010096

PATIENT
  Sex: Female

DRUGS (14)
  1. ERLOTINIB TABLET [Suspect]
     Indication: PANCREATIC CARCINOMA
     Dosage: 100 MG, UID/QD
     Route: 048
     Dates: start: 20130828, end: 20130830
  2. GEMZAR [Suspect]
     Indication: PANCREATIC CARCINOMA
     Dosage: UNK
     Route: 065
  3. GEMZAR [Suspect]
     Dosage: UNK
     Route: 065
     Dates: start: 20130827
  4. DECADRON                           /00016001/ [Concomitant]
     Indication: PRODUCT USED FOR UNKNOWN INDICATION
     Dosage: 4 MG, Q12 HOURS
     Route: 048
  5. TYLENOL                            /00020001/ [Concomitant]
     Indication: PAIN
     Dosage: UNK UNK, UNKNOWN/D
     Route: 048
  6. TYLENOL                            /00020001/ [Concomitant]
     Indication: PYREXIA
  7. LORAZEPAM [Concomitant]
     Indication: ANXIETY
     Dosage: 0.5 MG, PRN
     Route: 048
  8. PANTOPRAZOLE [Concomitant]
     Indication: GASTROOESOPHAGEAL REFLUX DISEASE
     Dosage: 40 MG, UID/QD
     Route: 048
  9. ZOFRAN                             /00955301/ [Concomitant]
     Indication: NAUSEA
     Dosage: 8 MG,  1 IN 8 HOURS
     Route: 048
  10. SENNA                              /00142201/ [Concomitant]
     Indication: CONSTIPATION
     Dosage: 8.6 MG, PRN
     Route: 048
  11. MORPHINE                           /00036302/ [Concomitant]
     Indication: PAIN
     Dosage: 15 MG, Q12 HOURS
     Route: 048
  12. MILK OF MAGNESIA [Concomitant]
     Indication: CONSTIPATION
     Dosage: AS NEEDED.
     Route: 048
  13. HALOPERIDOL [Concomitant]
     Indication: AGITATION
     Dosage: 1 MG, PRN
     Route: 048
  14. MORPHINE [Concomitant]
     Indication: PAIN
     Dosage: 10 MG, PRN
     Route: 048

REACTIONS (5)
  - Activities of daily living impaired [Unknown]
  - Performance status decreased [Unknown]
  - Malaise [Unknown]
  - Decreased appetite [Unknown]
  - Malignant neoplasm progression [Fatal]
